FAERS Safety Report 24240077 (Version 2)
Quarter: 2024Q4

REPORT INFORMATION
  Report Type: Spontaneous
  Country: GB (occurrence: GB)
  Receive Date: 20240822
  Receipt Date: 20241203
  Transmission Date: 20250115
  Serious: Yes (Death, Hospitalization)
  Sender: DAIICHI
  Company Number: GB-DSJP-DSE-2024-137684

PATIENT
  Age: 56 Year
  Sex: Female
  Weight: 96.3 kg

DRUGS (7)
  1. ENHERTU [Suspect]
     Active Substance: FAM-TRASTUZUMAB DERUXTECAN-NXKI
     Indication: Breast cancer metastatic
     Dosage: 440 MG
     Route: 065
     Dates: start: 20240213, end: 20240213
  2. ENHERTU [Suspect]
     Active Substance: FAM-TRASTUZUMAB DERUXTECAN-NXKI
     Indication: HER2 positive breast cancer
     Dosage: 440 MG
     Route: 065
     Dates: start: 20240312, end: 20240312
  3. ENHERTU [Suspect]
     Active Substance: FAM-TRASTUZUMAB DERUXTECAN-NXKI
     Dosage: 440 MG
     Route: 065
     Dates: start: 20240402, end: 20240402
  4. ENHERTU [Suspect]
     Active Substance: FAM-TRASTUZUMAB DERUXTECAN-NXKI
     Dosage: 440 MG
     Route: 065
     Dates: start: 20240423, end: 20240423
  5. ENHERTU [Suspect]
     Active Substance: FAM-TRASTUZUMAB DERUXTECAN-NXKI
     Dosage: 440 MG
     Route: 065
     Dates: start: 20240514, end: 20240514
  6. ENHERTU [Suspect]
     Active Substance: FAM-TRASTUZUMAB DERUXTECAN-NXKI
     Dosage: 440 MG
     Route: 065
     Dates: start: 20240604, end: 20240604
  7. ENHERTU [Suspect]
     Active Substance: FAM-TRASTUZUMAB DERUXTECAN-NXKI
     Dosage: 440 MG
     Route: 065
     Dates: start: 20240702, end: 20240702

REACTIONS (8)
  - Interstitial lung disease [Fatal]
  - Blood magnesium decreased [Recovered/Resolved]
  - Blood calcium decreased [Recovered/Resolved]
  - COVID-19 [Recovered/Resolved]
  - Pyrexia [Recovered/Resolved]
  - Weight decreased [Not Recovered/Not Resolved]
  - Hypophagia [Not Recovered/Not Resolved]
  - Nausea [Unknown]

NARRATIVE: CASE EVENT DATE: 20240622
